FAERS Safety Report 22247210 (Version 2)
Quarter: 2023Q2

REPORT INFORMATION
  Report Type: Spontaneous
  Country: US (occurrence: None)
  Receive Date: 20230424
  Receipt Date: 20230605
  Transmission Date: 20230721
  Serious: No
  Sender: FDA-Public Use
  Company Number: 2023A088016

PATIENT
  Sex: Male

DRUGS (1)
  1. PULMICORT FLEXHALER [Suspect]
     Active Substance: BUDESONIDE
     Dosage: 90.0UG/INHAL UNKNOWN
     Route: 055

REACTIONS (5)
  - Condition aggravated [Unknown]
  - Viral infection [Unknown]
  - Product use issue [Unknown]
  - Extra dose administered [Unknown]
  - Device delivery system issue [Unknown]
